FAERS Safety Report 7907127-8 (Version None)
Quarter: 2011Q4

REPORT INFORMATION
  Report Type: 
  Country: None (occurrence: None)
  Receive Date: 20111110
  Receipt Date: 20110801
  Transmission Date: 20120403
  Serious: No
  Sender: FDA-Public Use
  Company Number: US-ASTRAZENECA-2011SE46126

PATIENT

DRUGS (6)
  1. OMEPRAZOLE [Suspect]
     Route: 048
     Dates: start: 20110216
  2. LISINOPRIL [Suspect]
     Route: 048
  3. ASPIRIN [Concomitant]
  4. NITROFURANTOIN [Concomitant]
  5. COREG [Concomitant]
  6. PRAVASTATIN [Concomitant]
     Indication: BLOOD CHOLESTEROL ABNORMAL

REACTIONS (1)
  - GASTRIC ULCER [None]
